FAERS Safety Report 19982753 (Version 2)
Quarter: 2021Q4

REPORT INFORMATION
  Report Type: Spontaneous
  Country: US (occurrence: US)
  Receive Date: 20211021
  Receipt Date: 20211031
  Transmission Date: 20220303
  Serious: No
  Sender: FDA-Public Use
  Company Number: US-AMGEN-USASP2021158540

PATIENT
  Age: 78 Year
  Sex: Male
  Weight: 81.633 kg

DRUGS (1)
  1. REPATHA [Suspect]
     Active Substance: EVOLOCUMAB
     Indication: Prophylaxis
     Dosage: UNK
     Route: 065

REACTIONS (2)
  - Low density lipoprotein [Unknown]
  - Off label use [Unknown]

NARRATIVE: CASE EVENT DATE: 20210101
